FAERS Safety Report 7837347-2 (Version None)
Quarter: 2011Q4

REPORT INFORMATION
  Report Type: 
  Country: None (occurrence: None)
  Receive Date: 20111024
  Receipt Date: 20110331
  Transmission Date: 20120403
  Serious: No
  Sender: FDA-Public Use
  Company Number: US-ABBOTT-11P-163-0715822-00

PATIENT
  Sex: Female

DRUGS (3)
  1. PROMETRIUM [Suspect]
     Indication: PRODUCT USED FOR UNKNOWN INDICATION
  2. ESTRACE [Suspect]
     Indication: PRODUCT USED FOR UNKNOWN INDICATION
  3. LUPRON DEPOT [Suspect]
     Indication: PRODUCT USED FOR UNKNOWN INDICATION

REACTIONS (10)
  - FEELING ABNORMAL [None]
  - HEADACHE [None]
  - ANXIETY [None]
  - UTERINE SPASM [None]
  - MEMORY IMPAIRMENT [None]
  - BREAST PAIN [None]
  - BACK PAIN [None]
  - DIZZINESS [None]
  - POOR QUALITY SLEEP [None]
  - DYSPNOEA [None]
